FAERS Safety Report 16425456 (Version 2)
Quarter: 2020Q2

REPORT INFORMATION
  Report Type: Spontaneous
  Country: FR (occurrence: FR)
  Receive Date: 20190613
  Receipt Date: 20200519
  Transmission Date: 20200713
  Serious: Yes (Hospitalization, Other)
  Sender: FDA-Public Use
  Company Number: FR-TOPROL ACQUISITION LLC-2019-TOP-000298

PATIENT
  Age: 30 Year
  Sex: Female

DRUGS (1)
  1. METOPROLOL SUCCINATE. [Suspect]
     Active Substance: METOPROLOL SUCCINATE
     Indication: SUICIDE ATTEMPT
     Dosage: 4 G, UNK
     Route: 048

REACTIONS (5)
  - Ejection fraction decreased [Unknown]
  - Hypotension [Unknown]
  - Suicide attempt [Unknown]
  - Overdose [Unknown]
  - Sinus bradycardia [Unknown]
